FAERS Safety Report 4803016-6 (Version None)
Quarter: 2005Q4

REPORT INFORMATION
  Report Type: 
  Country: None (occurrence: None)
  Receive Date: 20051013
  Receipt Date: 20050927
  Transmission Date: 20060501
  Serious: Yes (Other)
  Sender: FDA-Public Use
  Company Number: GBS050818249

PATIENT
  Age: 30 Year
  Sex: Female

DRUGS (7)
  1. ZYPREXA [Suspect]
     Indication: PSYCHOTIC DISORDER
     Dosage: 5 MG
     Dates: start: 19970101
  2. KEPRA (LEVETIRACETAM) [Concomitant]
  3. CLOBAZAM [Concomitant]
  4. PHENOBARBITONE [Concomitant]
  5. TOPIRAMATE [Concomitant]
  6. FOLIC ACID [Concomitant]
  7. BECONASE (BECLOMETASONE DIPROPIONATE) [Concomitant]

REACTIONS (2)
  - ELECTROCARDIOGRAM QT CORRECTED INTERVAL PROLONGED [None]
  - OXYGEN SATURATION ABNORMAL [None]
